FAERS Safety Report 6925856-X (Version None)
Quarter: 2010Q3

REPORT INFORMATION
  Report Type: 
  Country: None (occurrence: None)
  Receive Date: 20100813
  Receipt Date: 20100813
  Transmission Date: 20110219
  Serious: Yes (Hospitalization)
  Sender: FDA-Public Use
  Company Number: None

PATIENT
  Age: 58 Year
  Sex: Male
  Weight: 153.3 kg

DRUGS (2)
  1. WARFARIN SODIUM [Suspect]
     Indication: CARDIOVASCULAR DISORDER
     Dosage: 8 MG EVERY DAY PO
     Route: 048
     Dates: start: 20011030
  2. WARFARIN SODIUM [Suspect]
     Indication: SURGERY
     Dosage: 8 MG EVERY DAY PO
     Route: 048
     Dates: start: 20011030

REACTIONS (2)
  - GASTRIC HAEMORRHAGE [None]
  - HAEMORRHAGE [None]
